FAERS Safety Report 12849886 (Version 3)
Quarter: 2016Q4

REPORT INFORMATION
  Report Type: Report from Study
  Country: US (occurrence: US)
  Receive Date: 20161014
  Receipt Date: 20161123
  Transmission Date: 20170207
  Serious: Yes (Hospitalization)
  Sender: FDA-Public Use
  Company Number: US-BIOGEN-2016BI00304001

PATIENT
  Age: 48 Year
  Sex: Female

DRUGS (2)
  1. TYSABRI [Suspect]
     Active Substance: NATALIZUMAB
     Indication: MULTIPLE SCLEROSIS
     Route: 042
     Dates: start: 20130219, end: 20160901
  2. TYSABRI [Suspect]
     Active Substance: NATALIZUMAB
     Route: 065
     Dates: start: 20130219

REACTIONS (11)
  - Pyrexia [Unknown]
  - Gastrointestinal disorder [Recovered/Resolved]
  - Renal impairment [Unknown]
  - Thrombosis [Not Recovered/Not Resolved]
  - Inflammation [Recovered/Resolved]
  - Nephritis [Recovered/Resolved]
  - Haemorrhage [Recovered/Resolved]
  - Dysstasia [Not Recovered/Not Resolved]
  - Kidney infection [Recovered/Resolved]
  - Abasia [Not Recovered/Not Resolved]
  - Urinary tract infection [Recovered/Resolved]

NARRATIVE: CASE EVENT DATE: 201608
